FAERS Safety Report 9739211 (Version 2)
Quarter: 2013Q4

REPORT INFORMATION
  Report Type: Spontaneous
  Country: DE (occurrence: DE)
  Receive Date: 20131209
  Receipt Date: 20131223
  Transmission Date: 20140711
  Serious: Yes (Life-Threatening, Hospitalization)
  Sender: FDA-Public Use
  Company Number: DE-JNJFOC-20131202630

PATIENT
  Age: 77 Year
  Sex: Female
  Weight: 75 kg

DRUGS (10)
  1. XARELTO [Suspect]
     Indication: ATRIAL FIBRILLATION
     Route: 048
     Dates: start: 20130601
  2. XARELTO [Suspect]
     Indication: CEREBROVASCULAR ACCIDENT PROPHYLAXIS
     Route: 048
     Dates: start: 20130601
  3. SIMVABETA [Concomitant]
     Route: 065
  4. RESTEX [Concomitant]
     Route: 065
  5. RANEXA [Concomitant]
     Route: 065
  6. VOLTAREN RESINAT [Concomitant]
     Route: 065
  7. METOBETA [Concomitant]
     Route: 065
  8. EXFORGE HCT [Concomitant]
     Dosage: ONCE MORNING
     Route: 065
  9. L-THYROXIN [Concomitant]
     Dosage: ONCE IN THE MORNING
     Route: 065
  10. PANTOPRAZOLE [Concomitant]
     Dosage: ONCE MORNING
     Route: 065

REACTIONS (7)
  - Hypocoagulable state [Recovered/Resolved]
  - Muscle haemorrhage [Recovered/Resolved]
  - Epistaxis [Recovered/Resolved]
  - Pharyngeal haemorrhage [Recovered/Resolved]
  - Haemorrhage urinary tract [Recovered/Resolved]
  - Intestinal haemorrhage [Recovered/Resolved]
  - Haemorrhage subcutaneous [Recovered/Resolved]
